FAERS Safety Report 10078756 (Version 1)
Quarter: 2014Q2

REPORT INFORMATION
  Report Type: Spontaneous
  Country: CH (occurrence: CH)
  Receive Date: 20140415
  Receipt Date: 20140415
  Transmission Date: 20141212
  Serious: Yes (Hospitalization)
  Sender: FDA-Public Use
  Company Number: CH-PFIZER INC-2014102094

PATIENT
  Age: 62 Year
  Sex: Female

DRUGS (1)
  1. MEDROL [Suspect]
     Dosage: 1 DF, SINGLE
     Dates: end: 2014

REACTIONS (1)
  - Mental disorder [Recovered/Resolved]
